FAERS Safety Report 5809722-9 (Version None)
Quarter: 2008Q3

REPORT INFORMATION
  Report Type: 
  Country: None (occurrence: None)
  Receive Date: 20080715
  Receipt Date: 20080701
  Transmission Date: 20090109
  Serious: Yes (Other)
  Sender: FDA-Public Use
  Company Number: DE-PURDUE-DEU_2008_0004424

PATIENT
  Age: 66 Year
  Sex: Female

DRUGS (2)
  1. PALLADONE [Suspect]
     Indication: PAIN
     Dates: end: 20080301
  2. HEPARIN [Suspect]

REACTIONS (2)
  - PERIODONTITIS [None]
  - TOOTH DISORDER [None]
